FAERS Safety Report 16269386 (Version 1)
Quarter: 2019Q2

REPORT INFORMATION
  Report Type: Spontaneous
  Country: US (occurrence: US)
  Receive Date: 20190503
  Receipt Date: 20190503
  Transmission Date: 20190711
  Serious: No
  Sender: FDA-Public Use
  Company Number: US-TEVA-2019-US-1044554

PATIENT
  Sex: Female

DRUGS (1)
  1. PROAIR HFA [Suspect]
     Active Substance: ALBUTEROL SULFATE
     Indication: COUGH
     Route: 065

REACTIONS (4)
  - Product prescribing error [Unknown]
  - Throat irritation [Unknown]
  - Cough [Unknown]
  - Product use in unapproved indication [Unknown]
